FAERS Safety Report 5675534-2 (Version None)
Quarter: 2008Q2

REPORT INFORMATION
  Report Type: 
  Country: None (occurrence: None)
  Receive Date: 20080314
  Receipt Date: 20070720
  Transmission Date: 20081010
  Serious: Yes (Other)
  Sender: FDA-Public Use
  Company Number: 02100-USA-07-0017

PATIENT
  Age: 74 Year
  Sex: Female

DRUGS (10)
  1. PLETAL [Suspect]
     Indication: INTERMITTENT CLAUDICATION
     Dosage: 50 MG BID ORAL
     Route: 048
     Dates: start: 20070523
  2. PLETAL [Suspect]
     Indication: INTERMITTENT CLAUDICATION
     Dosage: 100 MG BID ORAL
  3. PLETAL [Suspect]
     Indication: INTERMITTENT CLAUDICATION
     Dosage: 25 MG BID ORAL
     Route: 048
  4. ENALAPRIL MALEATE [Concomitant]
  5. ATENOLOL [Concomitant]
  6. LIPITOR [Concomitant]
  7. ASPIRIN [Concomitant]
  8. VITAMINS [Concomitant]
  9. CALCIUM [Concomitant]
  10. ACIPHEX [Concomitant]

REACTIONS (4)
  - ATRIAL FIBRILLATION [None]
  - PAIN IN EXTREMITY [None]
  - PALPITATIONS [None]
  - PHARYNGEAL OEDEMA [None]
